FAERS Safety Report 6282676-X (Version None)
Quarter: 2009Q3

REPORT INFORMATION
  Report Type: 
  Country: None (occurrence: None)
  Receive Date: 20090724
  Receipt Date: 20090722
  Transmission Date: 20100115
  Serious: Yes (Death)
  Sender: FDA-Public Use
  Company Number: PHHY2009IN30221

PATIENT
  Age: 59 Year
  Sex: Male

DRUGS (1)
  1. ASUNRA [Suspect]
     Dosage: 400 MG, BID

REACTIONS (1)
  - ACUTE RESPIRATORY DISTRESS SYNDROME [None]
